FAERS Safety Report 20617088 (Version 1)
Quarter: 2022Q1

REPORT INFORMATION
  Report Type: Report from Study
  Country: BR (occurrence: BR)
  Receive Date: 20220321
  Receipt Date: 20220321
  Transmission Date: 20220424
  Serious: Yes (Other)
  Sender: FDA-Public Use
  Company Number: BR-NOVARTISPH-NVSC2022BR063212

PATIENT
  Age: 74 Year
  Sex: Female

DRUGS (2)
  1. VIGAMOX [Suspect]
     Active Substance: MOXIFLOXACIN HYDROCHLORIDE
     Indication: Product used for unknown indication
     Dosage: UNK (1 DROP DURING 7 DAYS EVERY 2H)
     Route: 065
  2. DEXAMETHASONE SODIUM PHOSPHATE\MOXIFLOXACIN HYDROCHLORIDE [Suspect]
     Active Substance: DEXAMETHASONE SODIUM PHOSPHATE\MOXIFLOXACIN HYDROCHLORIDE
     Indication: Product used for unknown indication
     Dosage: UNK (THREE TIMES A DAY, FOR SIX DAYS)
     Route: 065

REACTIONS (11)
  - Syncope [Unknown]
  - Visual impairment [Unknown]
  - Hypersensitivity [Unknown]
  - Swelling face [Unknown]
  - Foreign body in eye [Unknown]
  - Eye inflammation [Unknown]
  - Dry eye [Unknown]
  - Eye disorder [Unknown]
  - Memory impairment [Unknown]
  - Malaise [Unknown]
  - Pain [Unknown]
